FAERS Safety Report 4853266-8 (Version None)
Quarter: 2005Q4

REPORT INFORMATION
  Report Type: 
  Country: None (occurrence: None)
  Receive Date: 20051214
  Receipt Date: 20051208
  Transmission Date: 20060501
  Serious: Yes (Hospitalization)
  Sender: FDA-Public Use
  Company Number: GB-SANOFI-SYNTHELABO-F01200502725

PATIENT
  Sex: Female
  Weight: 65.2 kg

DRUGS (6)
  1. OXALIPLATIN [Suspect]
     Route: 042
     Dates: start: 20051201, end: 20051201
  2. CAPECITABINE [Suspect]
     Route: 048
     Dates: start: 20051201, end: 20051201
  3. PENICILLIN V [Concomitant]
     Route: 048
     Dates: start: 20040201
  4. SALBUTAMOL [Concomitant]
     Dates: start: 20041201
  5. BECOTIDE [Concomitant]
     Dates: start: 20041101
  6. RAMIPRIL [Concomitant]
     Route: 048
     Dates: start: 20050101

REACTIONS (1)
  - LARYNGOSPASM [None]
